FAERS Safety Report 8462836-X (Version None)
Quarter: 2012Q2

REPORT INFORMATION
  Report Type: 
  Country: None (occurrence: None)
  Receive Date: 20120625
  Receipt Date: 20120618
  Transmission Date: 20120825
  Serious: Yes (Other)
  Sender: FDA-Public Use
  Company Number: GB-ROCHE-1079565

PATIENT
  Sex: Female
  Weight: 74 kg

DRUGS (1)
  1. ACTEMRA [Suspect]
     Indication: RHEUMATOID ARTHRITIS
     Dosage: DATE OF LAST DOSE PRIOR TO SAE: 25/APR/2012
     Dates: start: 20110627

REACTIONS (2)
  - RASH VESICULAR [None]
  - ECZEMA [None]
